FAERS Safety Report 4391820-0 (Version None)
Quarter: 2004Q3

REPORT INFORMATION
  Report Type: 
  Country: None (occurrence: None)
  Receive Date: 20040702
  Receipt Date: 20040430
  Transmission Date: 20050211
  Serious: Yes (Other)
  Sender: FDA-Public Use
  Company Number: 2004UW08902

PATIENT
  Age: 69 Year
  Sex: Female
  Weight: 66.2252 kg

DRUGS (5)
  1. CRESTOR [Suspect]
     Dosage: 10 MG QD; PO
     Route: 048
     Dates: start: 20040401
  2. ARIMIDEX [Concomitant]
  3. ALLEGRA [Concomitant]
  4. MOTRIN [Concomitant]
  5. OCUVITE [Concomitant]

REACTIONS (2)
  - MUSCLE SPASMS [None]
  - MUSCULOSKELETAL STIFFNESS [None]
